FAERS Safety Report 23846856 (Version 1)
Quarter: 2024Q2

REPORT INFORMATION
  Report Type: Spontaneous
  Country: US (occurrence: US)
  Receive Date: 20240513
  Receipt Date: 20240513
  Transmission Date: 20240716
  Serious: No
  Sender: FDA-Public Use
  Company Number: US-E2BLSMVVAL-SPO/USA/24/0006798

PATIENT
  Age: 15 Year
  Sex: Female

DRUGS (2)
  1. ACCUTANE [Suspect]
     Active Substance: ISOTRETINOIN
     Indication: Product used for unknown indication
     Dosage: ONE CAPSULE BY MOUTH ONCE A DAY
     Route: 048
     Dates: start: 20240123
  2. ACCUTANE [Suspect]
     Active Substance: ISOTRETINOIN
     Dosage: ONE CAPSULE BY MOUTH ONCE A DAY
     Route: 048

REACTIONS (3)
  - Headache [Unknown]
  - Cheilitis [Unknown]
  - Xerosis [Unknown]
